FAERS Safety Report 9356091 (Version 1)
Quarter: 2013Q2

REPORT INFORMATION
  Report Type: Spontaneous
  Country: US (occurrence: US)
  Receive Date: 20130619
  Receipt Date: 20130619
  Transmission Date: 20140414
  Serious: Yes (Hospitalization)
  Sender: FDA-Public Use
  Company Number: US-GLAXOSMITHKLINE-A1027393A

PATIENT
  Age: 67 Year
  Sex: Male

DRUGS (1)
  1. NICORETTE OTC, UNSPECIFIED [Suspect]
     Indication: EX-TOBACCO USER
     Route: 065
     Dates: start: 200308, end: 201101

REACTIONS (4)
  - Ulcer haemorrhage [Not Recovered/Not Resolved]
  - Nicotine dependence [Recovered/Resolved]
  - Malaise [Recovered/Resolved]
  - Intentional drug misuse [Unknown]
